FAERS Safety Report 6546098-6 (Version None)
Quarter: 2010Q1

REPORT INFORMATION
  Report Type: 
  Country: None (occurrence: None)
  Receive Date: 20100122
  Receipt Date: 20100114
  Transmission Date: 20100710
  Serious: Yes (Hospitalization)
  Sender: FDA-Public Use
  Company Number: DE-BIOGENIDEC-2009BI040864

PATIENT
  Age: 34 Year
  Sex: Female

DRUGS (3)
  1. TYSABRI [Suspect]
     Indication: RELAPSING-REMITTING MULTIPLE SCLEROSIS
     Route: 042
     Dates: start: 20080415, end: 20091120
  2. TYSABRI [Suspect]
     Route: 042
     Dates: start: 20091223
  3. ASCO TOP [Concomitant]
     Indication: MIGRAINE
     Route: 048

REACTIONS (1)
  - CONVERSION DISORDER [None]
